FAERS Safety Report 24024807 (Version 1)
Quarter: 2024Q2

REPORT INFORMATION
  Report Type: Report from Study
  Country: US (occurrence: US)
  Receive Date: 20240628
  Receipt Date: 20240628
  Transmission Date: 20240715
  Serious: No
  Sender: FDA-Public Use
  Company Number: US-ROCHE-3478682

PATIENT
  Age: 71 Year
  Sex: Male

DRUGS (1)
  1. ALECENSA [Suspect]
     Active Substance: ALECTINIB HYDROCHLORIDE
     Indication: Lung neoplasm malignant
     Dosage: 4 CAPSULES BY MOUTH TWICE A DAY WITH MEALS
     Route: 048

REACTIONS (5)
  - Fatigue [Unknown]
  - Dyspepsia [Unknown]
  - Myalgia [Unknown]
  - Abdominal distension [Unknown]
  - Swelling [Unknown]
